FAERS Safety Report 17809334 (Version 1)
Quarter: 2020Q2

REPORT INFORMATION
  Report Type: Spontaneous
  Country: FR (occurrence: FR)
  Receive Date: 20200520
  Receipt Date: 20200520
  Transmission Date: 20200714
  Serious: Yes (Other)
  Sender: FDA-Public Use
  Company Number: NVSC2020FR135794

PATIENT
  Age: 50 Year
  Sex: Male

DRUGS (4)
  1. DEBRIDAT [Suspect]
     Active Substance: TRIMEBUTINE MALEATE
     Indication: POISONING DELIBERATE
     Dosage: NOT SPECIFIED
     Route: 048
     Dates: start: 20200208, end: 20200208
  2. PARACETAMOL [Suspect]
     Active Substance: ACETAMINOPHEN
     Indication: POISONING DELIBERATE
     Dosage: 20 TO 24 GM
     Route: 048
     Dates: start: 20200208, end: 20200208
  3. IMODIUM [Suspect]
     Active Substance: LOPERAMIDE HYDROCHLORIDE
     Indication: POISONING DELIBERATE
     Dosage: NOT SPECIFIED
     Route: 048
     Dates: start: 20200208, end: 20200208
  4. MOPRAL [Suspect]
     Active Substance: OMEPRAZOLE
     Indication: POISONING DELIBERATE
     Dosage: NOT SPECIFIED
     Route: 048
     Dates: start: 20200208, end: 20200208

REACTIONS (1)
  - Poisoning deliberate [Recovered/Resolved]

NARRATIVE: CASE EVENT DATE: 20200208
